FAERS Safety Report 5352584-7 (Version None)
Quarter: 2007Q2

REPORT INFORMATION
  Report Type: 
  Country: None (occurrence: None)
  Receive Date: 20070518
  Receipt Date: 20060717
  Transmission Date: 20071010
  Serious: Yes (Hospitalization)
  Sender: FDA-Public Use
  Company Number: Q06-033

PATIENT
  Age: 79 Year
  Sex: Male
  Weight: 81.1939 kg

DRUGS (15)
  1. SAMARIUM (SM-153) [Suspect]
     Indication: PROSTATE CANCER
     Dosage: 0.75 MIC/KG IV
     Route: 042
     Dates: start: 20050203
  2. ZOMETA [Suspect]
     Dosage: 4 MG IV
     Route: 042
     Dates: start: 20050204
  3. HYDROCHLOROTHIAZIDE [Concomitant]
  4. PLAVIX [Concomitant]
  5. ZOCOR [Concomitant]
  6. AVALIDE [Concomitant]
  7. ACTOS [Concomitant]
  8. PRAVACID [Concomitant]
  9. DURAGESIC-100 [Concomitant]
  10. OXYCODONE HCL [Concomitant]
  11. ARANESP [Concomitant]
  12. DES(DC) [Concomitant]
  13. COUMADIN(DC) [Concomitant]
  14. COMPAZINE [Concomitant]
  15. . [Concomitant]

REACTIONS (3)
  - AMNESIA [None]
  - DISORIENTATION [None]
  - DISTURBANCE IN ATTENTION [None]
